FAERS Safety Report 24385699 (Version 11)
Quarter: 2025Q1

REPORT INFORMATION
  Report Type: Spontaneous
  Country: US (occurrence: US)
  Receive Date: 20241001
  Receipt Date: 20250319
  Transmission Date: 20250408
  Serious: Yes (Hospitalization, Other)
  Sender: PFIZER
  Company Number: US-PFIZER INC-PV202400077888

PATIENT
  Age: 80 Year
  Sex: Female

DRUGS (4)
  1. TUKYSA [Suspect]
     Active Substance: TUCATINIB
     Indication: Breast cancer female
     Dosage: 1 TABLET TWICE A DAY
     Route: 048
     Dates: start: 202405
  2. TUKYSA [Suspect]
     Active Substance: TUCATINIB
     Dosage: 300MGS ORALLY 2X A DAY
     Route: 048
  3. TRASTUZUMAB [Suspect]
     Active Substance: TRASTUZUMAB
     Dates: start: 20240606
  4. XELODA [Suspect]
     Active Substance: CAPECITABINE
     Dates: start: 20240606

REACTIONS (7)
  - Pharyngo-oesophageal diverticulum [Unknown]
  - Pneumonia [Unknown]
  - Off label use [Unknown]
  - Off label use [Unknown]
  - Infection [Unknown]
  - Alopecia [Unknown]
  - Diarrhoea [Unknown]

NARRATIVE: CASE EVENT DATE: 20240501
